FAERS Safety Report 9972732 (Version 1)
Quarter: 2014Q1

REPORT INFORMATION
  Report Type: Spontaneous
  Country: US (occurrence: US)
  Receive Date: 20140306
  Receipt Date: 20140306
  Transmission Date: 20141002
  Serious: No
  Sender: FDA-Public Use
  Company Number: US-PFIZER INC-2014057448

PATIENT
  Age: 65 Year
  Sex: Female

DRUGS (4)
  1. BOSULIF [Suspect]
     Indication: CHRONIC MYELOID LEUKAEMIA
     Dosage: UNK
     Dates: start: 20140207
  2. PROMETHAZINE W/CODEINE [Concomitant]
     Dosage: UNK
  3. FERROUS SULFATE [Concomitant]
     Dosage: UNK
  4. BENZONATATE [Concomitant]
     Dosage: UNK

REACTIONS (1)
  - Vomiting [Unknown]
